FAERS Safety Report 7710840-9 (Version None)
Quarter: 2011Q3

REPORT INFORMATION
  Report Type: 
  Country: None (occurrence: None)
  Receive Date: 20110825
  Receipt Date: 20110817
  Transmission Date: 20111222
  Serious: Yes (Hospitalization)
  Sender: FDA-Public Use
  Company Number: US-ALLERGAN-1109127US

PATIENT
  Age: 5 Year
  Sex: Male
  Weight: 20.862 kg

DRUGS (2)
  1. BOTULINUM TOXIN TYPE A [Suspect]
     Indication: SECRETION DISCHARGE
     Dosage: 80 UNITS, SINGLE
     Dates: start: 20110621, end: 20110621
  2. BOTULINUM TOXIN TYPE A [Suspect]
     Indication: MUSCLE SPASTICITY
     Dosage: UNK
     Dates: start: 20110215, end: 20110215

REACTIONS (1)
  - UPPER AIRWAY OBSTRUCTION [None]
